FAERS Safety Report 5210437-9 (Version None)
Quarter: 2006Q4

REPORT INFORMATION
  Report Type: 
  Country: None (occurrence: None)
  Receive Date: 20061103
  Receipt Date: 20060727
  Transmission Date: 20070319
  Serious: Yes (Other)
  Sender: FDA-Public Use
  Company Number: 457486

PATIENT
  Age: 49 Year
  Sex: Female
  Weight: 86.2 kg

DRUGS (3)
  1. BONIVA [Suspect]
     Indication: DRUG USE FOR UNKNOWN INDICATION
     Dosage: 1 PER 3 MONTH INTRAVENOUS
     Route: 042
     Dates: start: 20060724
  2. METOPROLOL TARTRATE [Concomitant]
  3. BENICAR [Concomitant]

REACTIONS (1)
  - BLOOD PRESSURE DECREASED [None]
